FAERS Safety Report 26177153 (Version 1)
Quarter: 2025Q4

REPORT INFORMATION
  Report Type: Spontaneous
  Country: US (occurrence: US)
  Receive Date: 20251219
  Receipt Date: 20251219
  Transmission Date: 20260118
  Serious: No
  Sender: BRISTOL-MYERS SQUIBB COMPANY
  Company Number: US-BRISTOL-MYERS SQUIBB COMPANY-2025-170284

PATIENT
  Age: 74 Year
  Sex: Male

DRUGS (2)
  1. ORENCIA [Suspect]
     Active Substance: ABATACEPT
     Indication: Psoriasis
     Dosage: EVERY 2 - 4 WEEKS
     Route: 058
     Dates: start: 202309
  2. PROLIA [Concomitant]
     Active Substance: DENOSUMAB
     Indication: Product used for unknown indication

REACTIONS (1)
  - Feeling abnormal [Unknown]
